FAERS Safety Report 6134020-6 (Version None)
Quarter: 2009Q1

REPORT INFORMATION
  Report Type: 
  Country: None (occurrence: None)
  Receive Date: 20090217
  Receipt Date: 20081030
  Transmission Date: 20090719
  Serious: No
  Sender: FDA-Public Use
  Company Number: AEUSA200800261

PATIENT
  Age: 74 Year
  Sex: Female

DRUGS (7)
  1. PROLASTIN [Suspect]
     Indication: ALPHA-1 ANTI-TRYPSIN DEFICIENCY
     Dosage: 3288 MG; QW; IV
     Route: 042
     Dates: start: 20081022
  2. PREDNISONE [Concomitant]
  3. ZEMAIRA [Concomitant]
  4. BENADRYL [Concomitant]
  5. TOPROL-XL [Concomitant]
  6. SPIRIVA [Concomitant]
  7. PROTONIX /01263202/ [Concomitant]

REACTIONS (4)
  - ADVERSE DRUG REACTION [None]
  - BLOOD PRESSURE INCREASED [None]
  - FEELING ABNORMAL [None]
  - HEART RATE INCREASED [None]
